FAERS Safety Report 7387921-5 (Version None)
Quarter: 2011Q2

REPORT INFORMATION
  Report Type: 
  Country: None (occurrence: None)
  Receive Date: 20110401
  Receipt Date: 20110322
  Transmission Date: 20111010
  Serious: Yes (Hospitalization)
  Sender: FDA-Public Use
  Company Number: US-BIOGENIDEC-2011BI007731

PATIENT
  Age: 55 Year
  Sex: Female
  Weight: 89 kg

DRUGS (11)
  1. VITAMIN E [Concomitant]
     Route: 048
  2. ZANAFLEX [Concomitant]
  3. TYSABRI [Suspect]
     Indication: MULTIPLE SCLEROSIS
     Route: 042
     Dates: start: 20070209
  4. ASPIRIN [Concomitant]
     Route: 048
  5. FLAX SEED OIL [Concomitant]
     Route: 048
  6. FOLIC ACID [Concomitant]
     Route: 048
  7. MULTI-VITAMIN [Concomitant]
     Route: 048
  8. LISINOPRIL [Concomitant]
     Route: 048
  9. ACETAMINOPHEN [Concomitant]
     Indication: PREMEDICATION
     Route: 048
  10. CRESTOR [Concomitant]
     Route: 048
  11. TAMIFLU [Concomitant]
     Route: 048

REACTIONS (2)
  - MULTIPLE SCLEROSIS RELAPSE [None]
  - BURNS SECOND DEGREE [None]
